FAERS Safety Report 11704198 (Version 1)
Quarter: 2015Q4

REPORT INFORMATION
  Report Type: Spontaneous
  Country: FR (occurrence: FR)
  Receive Date: 20151106
  Receipt Date: 20151106
  Transmission Date: 20160304
  Serious: Yes (Hospitalization)
  Sender: FDA-Public Use
  Company Number: FR-SA-2015SA173238

PATIENT
  Age: 75 Year
  Sex: Female

DRUGS (7)
  1. RIFADIN [Suspect]
     Active Substance: RIFAMPIN
     Indication: DEVICE RELATED INFECTION
     Route: 042
     Dates: start: 20150403, end: 20150414
  2. CANDESARTAN CILEXETIL. [Concomitant]
     Active Substance: CANDESARTAN CILEXETIL
     Route: 048
  3. CUBICIN [Suspect]
     Active Substance: DAPTOMYCIN
     Indication: DEVICE RELATED INFECTION
     Dosage: POWDER FOR SOLUTION TO BE DILUTED FOR INFUSION
     Route: 042
     Dates: start: 20150407, end: 20150414
  4. FLECAINE [Concomitant]
     Active Substance: FLECAINIDE
     Dosage: 150  MG, PROLONGED RELEASE CAPSULE
     Route: 048
     Dates: end: 20150417
  5. CORDARONE [Concomitant]
     Active Substance: AMIODARONE HYDROCHLORIDE
     Dosage: 200  MG, COMPRIM? S?CABLE
     Route: 048
  6. CORDARONE [Concomitant]
     Active Substance: AMIODARONE HYDROCHLORIDE
     Route: 048
  7. LOVENOX [Concomitant]
     Active Substance: ENOXAPARIN SODIUM
     Route: 058

REACTIONS (1)
  - Atrial fibrillation [Recovered/Resolved]

NARRATIVE: CASE EVENT DATE: 20150413
